FAERS Safety Report 6822003-X (Version None)
Quarter: 2010Q3

REPORT INFORMATION
  Report Type: 
  Country: None (occurrence: None)
  Receive Date: 20100708
  Receipt Date: 20100628
  Transmission Date: 20110219
  Serious: Yes (Other)
  Sender: FDA-Public Use
  Company Number: CA-JNJFOC-20091006867

PATIENT
  Sex: Male
  Weight: 97.7 kg

DRUGS (1)
  1. REMICADE [Suspect]
     Indication: RHEUMATOID ARTHRITIS
     Dosage: 30 DOSES TOTAL
     Route: 042
     Dates: start: 20050619, end: 20090902

REACTIONS (1)
  - INTRACARDIAC MASS [None]
